FAERS Safety Report 9184993 (Version 7)
Quarter: 2016Q4

REPORT INFORMATION
  Report Type: Report from Study
  Country: CA (occurrence: CA)
  Receive Date: 20130325
  Receipt Date: 20161013
  Transmission Date: 20170207
  Serious: Yes (Hospitalization, Other)
  Sender: FDA-Public Use
  Company Number: CA-ROCHE-756137

PATIENT
  Age: 63 Year
  Sex: Female
  Weight: 66 kg

DRUGS (23)
  1. ACTEMRA [Suspect]
     Active Substance: TOCILIZUMAB
     Indication: RHEUMATOID ARTHRITIS
     Route: 042
     Dates: start: 20120710, end: 2015
  2. AMITRIPTYLINE [Concomitant]
     Active Substance: AMITRIPTYLINE
  3. SALBUTAMOL [Concomitant]
     Active Substance: ALBUTEROL
  4. RITUXAN [Suspect]
     Active Substance: RITUXIMAB
     Route: 042
     Dates: start: 20091027, end: 20111101
  5. ACTEMRA [Suspect]
     Active Substance: TOCILIZUMAB
     Indication: RHEUMATOID ARTHRITIS
     Route: 058
     Dates: start: 20160413
  6. ZOPICLONE [Concomitant]
     Active Substance: ZOPICLONE
  7. DETROL [Concomitant]
     Active Substance: TOLTERODINE TARTRATE
  8. METHOTREXATE. [Concomitant]
     Active Substance: METHOTREXATE
  9. FLONASE [Concomitant]
     Active Substance: FLUTICASONE PROPIONATE
  10. NEXIUM [Concomitant]
     Active Substance: ESOMEPRAZOLE MAGNESIUM
  11. FUROSEMIDE. [Concomitant]
     Active Substance: FUROSEMIDE
  12. VENTOLIN [Concomitant]
     Active Substance: ALBUTEROL SULFATE
  13. OXYTROL [Concomitant]
     Active Substance: OXYBUTYNIN
  14. RITUXAN [Suspect]
     Active Substance: RITUXIMAB
     Dosage: FREQUENCY: DAY 1 AND 15.
     Route: 042
     Dates: start: 20091027, end: 20110222
  15. FLOVENT [Concomitant]
     Active Substance: FLUTICASONE PROPIONATE
  16. FLUTICASONE [Concomitant]
     Active Substance: FLUTICASONE\FLUTICASONE PROPIONATE
  17. RITUXAN [Suspect]
     Active Substance: RITUXIMAB
     Indication: RHEUMATOID ARTHRITIS
     Dosage: FREQUENCY: DAY 1, 15, FORM: INFUSION
     Route: 042
  18. CELEBREX [Concomitant]
     Active Substance: CELECOXIB
  19. OMEPRAZOLE. [Concomitant]
     Active Substance: OMEPRAZOLE
  20. PAXIL (CANADA) [Concomitant]
  21. LORAZEPAM. [Concomitant]
     Active Substance: LORAZEPAM
  22. TYLENOL WITH CODEINE [Concomitant]
     Active Substance: ACETAMINOPHEN\CODEINE PHOSPHATE
  23. TESTOSTERON [Concomitant]
     Active Substance: TESTOSTERONE

REACTIONS (14)
  - Renal disorder [Not Recovered/Not Resolved]
  - Haemoglobin decreased [Unknown]
  - Enteritis infectious [Unknown]
  - Stomal hernia [Not Recovered/Not Resolved]
  - Aneurysm [Unknown]
  - Urinary bladder haemorrhage [Not Recovered/Not Resolved]
  - Benign neoplasm of bladder [Unknown]
  - Wound [Not Recovered/Not Resolved]
  - Drug ineffective [Unknown]
  - Staphylococcal infection [Not Recovered/Not Resolved]
  - Oedema peripheral [Unknown]
  - Stomal hernia [Not Recovered/Not Resolved]
  - Muscle strain [Unknown]
  - Impaired healing [Not Recovered/Not Resolved]

NARRATIVE: CASE EVENT DATE: 2010
